FAERS Safety Report 4340452-9 (Version None)
Quarter: 2004Q2

REPORT INFORMATION
  Report Type: 
  Country: None (occurrence: None)
  Receive Date: 20040414
  Receipt Date: 20040326
  Transmission Date: 20050107
  Serious: Yes (Hospitalization)
  Sender: FDA-Public Use
  Company Number: MEDI-0001611

PATIENT
  Age: 59 Year
  Sex: Male
  Weight: 179.8 kg

DRUGS (6)
  1. ETHYOL [Suspect]
     Indication: RADIOTHERAPY
     Dosage: 500 MG, SUBCUTANEOUS
     Route: 058
     Dates: start: 20040218, end: 20040322
  2. ETHYOL [Suspect]
     Indication: RADIOTHERAPY
     Dosage: 500 MG, SUBCUTANEOUS
     Route: 058
     Dates: start: 20040329
  3. RADIATION THERAPY [Concomitant]
  4. ALLEGRA [Concomitant]
  5. ZOFRAN [Concomitant]
  6. ADAVAN (LORAZEPAM) [Concomitant]

REACTIONS (3)
  - EYE SWELLING [None]
  - PYREXIA [None]
  - SWELLING FACE [None]
